FAERS Safety Report 9710928 (Version 1)
Quarter: 2013Q4

REPORT INFORMATION
  Report Type: Spontaneous
  Country: IN (occurrence: IN)
  Receive Date: 20131126
  Receipt Date: 20131126
  Transmission Date: 20140711
  Serious: Yes (Death, Hospitalization)
  Sender: FDA-Public Use
  Company Number: IN-EISAI INC-E7389-04455-SPO-IN

PATIENT
  Age: 47 Year
  Sex: Female

DRUGS (1)
  1. HALAVEN [Suspect]
     Indication: BREAST CANCER METASTATIC
     Dosage: UNKNOWN
     Route: 041
     Dates: start: 20131101

REACTIONS (4)
  - Abdominal pain [Fatal]
  - Pyrexia [Fatal]
  - Vomiting [Fatal]
  - Diarrhoea [Unknown]
